FAERS Safety Report 16822598 (Version 1)
Quarter: 2019Q3

REPORT INFORMATION
  Report Type: Spontaneous
  Country: US (occurrence: US)
  Receive Date: 20190918
  Receipt Date: 20190918
  Transmission Date: 20191005
  Serious: No
  Sender: FDA-Public Use
  Company Number: US-PFIZER INC-2019403284

PATIENT
  Sex: Male

DRUGS (10)
  1. GABAPENTIN. [Suspect]
     Active Substance: GABAPENTIN
     Indication: BURNING SENSATION
  2. CAPSAICIN. [Suspect]
     Active Substance: CAPSAICIN
     Indication: BURNING SENSATION
  3. GABAPENTIN. [Suspect]
     Active Substance: GABAPENTIN
     Indication: PAIN
  4. GABAPENTIN. [Suspect]
     Active Substance: GABAPENTIN
     Indication: CEREBELLAR ATAXIA
     Dosage: UNK
  5. GABAPENTIN. [Suspect]
     Active Substance: GABAPENTIN
     Indication: OPTIC NEUROPATHY
  6. CAPSAICIN. [Suspect]
     Active Substance: CAPSAICIN
     Indication: PAIN
  7. GABAPENTIN. [Suspect]
     Active Substance: GABAPENTIN
     Indication: PARAESTHESIA
  8. CAPSAICIN. [Suspect]
     Active Substance: CAPSAICIN
     Indication: OPTIC NEUROPATHY
  9. CAPSAICIN. [Suspect]
     Active Substance: CAPSAICIN
     Indication: CEREBELLAR ATAXIA
     Dosage: UNK
  10. CAPSAICIN. [Suspect]
     Active Substance: CAPSAICIN
     Indication: PARAESTHESIA

REACTIONS (2)
  - Drug ineffective for unapproved indication [Unknown]
  - Off label use [Unknown]
